FAERS Safety Report 14324963 (Version 1)
Quarter: 2017Q4

REPORT INFORMATION
  Report Type: Report from Study
  Country: US (occurrence: US)
  Receive Date: 20171226
  Receipt Date: 20171226
  Transmission Date: 20180321
  Serious: No
  Sender: FDA-Public Use
  Company Number: US-CLOVIS ONCOLOGY-CLO-2017-001340

PATIENT
  Age: 82 Year
  Sex: Female
  Weight: 53.52 kg

DRUGS (2)
  1. RUBRACA [Suspect]
     Active Substance: RUCAPARIB CAMSYLATE
     Indication: OVARIAN CANCER
     Dosage: 200MG (2 IN AM, 1 IN PM)
     Route: 048
     Dates: start: 20171107
  2. RUBRACA [Suspect]
     Active Substance: RUCAPARIB CAMSYLATE
     Indication: OVARIAN CANCER
     Dosage: 600 MG (300X2)/300MG(1) IN PM
     Route: 048
     Dates: start: 20171031

REACTIONS (5)
  - Prescribed underdose [Unknown]
  - Laboratory test abnormal [Unknown]
  - Wound complication [Recovered/Resolved]
  - Fatigue [Not Recovered/Not Resolved]
  - Underdose [Unknown]

NARRATIVE: CASE EVENT DATE: 20171031
